FAERS Safety Report 5657614-0 (Version None)
Quarter: 2008Q1

REPORT INFORMATION
  Report Type: 
  Country: None (occurrence: None)
  Receive Date: 20080307
  Receipt Date: 20080307
  Transmission Date: 20080703
  Serious: Yes (Other)
  Sender: FDA-Public Use
  Company Number: None

PATIENT
  Age: 66 Year
  Sex: Female
  Weight: 65.318 kg

DRUGS (2)
  1. LEVAQUIN [Suspect]
     Indication: ASTHMA
     Dosage: 5 DAYS 1 PER DAY PO
     Route: 048
     Dates: start: 20080220, end: 20080224
  2. LEVAQUIN [Suspect]
     Indication: UPPER RESPIRATORY TRACT INFECTION
     Dosage: 5 DAYS 1 PER DAY PO
     Route: 048
     Dates: start: 20080220, end: 20080224

REACTIONS (3)
  - ARTHRALGIA [None]
  - MYALGIA [None]
  - PAIN IN EXTREMITY [None]
